FAERS Safety Report 11907462 (Version 1)
Quarter: 2020Q3

REPORT INFORMATION
  Report Type: Report from Study
  Country: AT (occurrence: AT)
  Receive Date: 20160111
  Receipt Date: 20160111
  Transmission Date: 20201104
  Serious: Yes (Hospitalization)
  Sender: FDA-Public Use
  Company Number: AT-JNJFOC-20150809167

PATIENT
  Age: 30 Year
  Sex: Male
  Weight: 54 kg

DRUGS (12)
  1. NOVALGIN (METAMIZOLE SODIUM) [Concomitant]
     Active Substance: METAMIZOLE SODIUM
     Indication: HEADACHE
     Route: 048
     Dates: start: 201405
  2. USTEKINUMAB [Suspect]
     Active Substance: USTEKINUMAB
     Route: 058
  3. BUSCOPAN [Concomitant]
     Active Substance: BUTYLSCOPOLAMINE BROMIDE
     Indication: ABDOMINAL PAIN
     Route: 048
     Dates: start: 201405
  4. PENTASA [Concomitant]
     Active Substance: MESALAMINE
     Indication: CROHN^S DISEASE
     Route: 048
  5. CELEBREX [Concomitant]
     Active Substance: CELECOXIB
     Route: 048
     Dates: start: 20150601
  6. CANESTEN [Concomitant]
     Active Substance: CLOTRIMAZOLE
     Route: 061
     Dates: start: 20131105
  7. MYCOSTATIN [Concomitant]
     Active Substance: NYSTATIN
     Route: 061
     Dates: start: 20131105
  8. USTEKINUMAB [Suspect]
     Active Substance: USTEKINUMAB
     Indication: CROHN^S DISEASE
     Route: 058
     Dates: start: 20121204
  9. ZINKSALBE DIALON [Concomitant]
     Route: 061
     Dates: start: 20131106
  10. OTRIVIN [Concomitant]
     Active Substance: XYLOMETAZOLINE
     Route: 045
     Dates: start: 20150914
  11. SIMETHICONE (DIMETHICONE) [Concomitant]
     Active Substance: DIMETHICONE
     Route: 048
     Dates: start: 20150811
  12. BENZOCAINE. [Concomitant]
     Active Substance: BENZOCAINE
     Route: 048
     Dates: start: 20150916

REACTIONS (2)
  - Pyelonephritis [Recovered/Resolved]
  - Nephrolithiasis [Recovered/Resolved]

NARRATIVE: CASE EVENT DATE: 20150705
